FAERS Safety Report 16282481 (Version 1)
Quarter: 2019Q2

REPORT INFORMATION
  Report Type: Spontaneous
  Country: US (occurrence: US)
  Receive Date: 20190507
  Receipt Date: 20190507
  Transmission Date: 20190711
  Serious: Yes (Hospitalization, Other)
  Sender: FDA-Public Use
  Company Number: US-PFIZER INC-2019191426

PATIENT
  Sex: Female

DRUGS (2)
  1. TALZENNA [Suspect]
     Active Substance: TALAZOPARIB TOSYLATE
     Indication: BREAST CANCER METASTATIC
     Dosage: 1 MG, UNK
  2. TALZENNA [Suspect]
     Active Substance: TALAZOPARIB TOSYLATE
     Dosage: 0.75 MG, UNK

REACTIONS (2)
  - Haemoglobin decreased [Unknown]
  - Platelet count decreased [Unknown]
